FAERS Safety Report 19825966 (Version 1)
Quarter: 2021Q3

REPORT INFORMATION
  Report Type: Spontaneous
  Country: US (occurrence: US)
  Receive Date: 20210910
  Receipt Date: 20210910
  Transmission Date: 20211014
  Serious: Yes (Death)
  Sender: FDA-Public Use
  Company Number: None

PATIENT
  Sex: Male

DRUGS (8)
  1. AMLODIPINE [Concomitant]
     Active Substance: AMLODIPINE BESYLATE
  2. OMEPRAZOLE. [Concomitant]
     Active Substance: OMEPRAZOLE
  3. ATENOLOL. [Concomitant]
     Active Substance: ATENOLOL
  4. TRELSTAR [Suspect]
     Active Substance: TRIPTORELIN PAMOATE
     Indication: PROSTATE CANCER
     Dosage: OTHER FREQUENCY:EVERY 3 MONTH;?
     Route: 030
     Dates: start: 20201019
  5. TYLENOL [Concomitant]
     Active Substance: ACETAMINOPHEN
  6. ENALAPRIL?HCTZ [Concomitant]
  7. FLOMAX [Concomitant]
     Active Substance: TAMSULOSIN HYDROCHLORIDE
  8. TRAMADOL. [Concomitant]
     Active Substance: TRAMADOL

REACTIONS (1)
  - Death [None]
